FAERS Safety Report 7579637-7 (Version None)
Quarter: 2011Q2

REPORT INFORMATION
  Report Type: 
  Country: None (occurrence: None)
  Receive Date: 20110629
  Receipt Date: 20110617
  Transmission Date: 20111010
  Serious: Yes (Hospitalization)
  Sender: FDA-Public Use
  Company Number: FR-CELGENEUS-056-C5013-11062466

PATIENT
  Sex: Female
  Weight: 39 kg

DRUGS (21)
  1. ZOMETA [Concomitant]
     Indication: PROPHYLAXIS
     Route: 048
     Dates: start: 20100528
  2. DEXAMETHASONE [Suspect]
     Indication: MULTIPLE MYELOMA
     Route: 065
     Dates: start: 20100329
  3. DEBRIDAT [Concomitant]
     Indication: PROPHYLAXIS
     Route: 048
     Dates: start: 20020201
  4. ALLOPURINOL [Concomitant]
     Indication: PROPHYLAXIS
     Dosage: 300 MILLIGRAM
     Route: 048
     Dates: start: 20100329
  5. ZOFENYL [Concomitant]
     Dosage: 30 MILLIGRAM
     Route: 048
     Dates: start: 20100816
  6. EBASTINE [Concomitant]
     Indication: ASTHMA
     Dosage: 10 MILLIGRAM
     Route: 048
     Dates: start: 20101122
  7. POLYETHYLENE GLYCOL [Concomitant]
     Indication: CONSTIPATION
     Route: 048
     Dates: start: 20101122
  8. LENALIDOMIDE [Suspect]
     Route: 048
     Dates: start: 20110527
  9. ASPIRIN [Concomitant]
     Indication: THROMBOSIS PROPHYLAXIS
     Dosage: 75 MILLIGRAM
     Route: 048
     Dates: start: 20090801
  10. SYMBICORT [Concomitant]
  11. EPREX [Concomitant]
     Route: 058
     Dates: start: 20110429
  12. ACETAMINOPHEN [Concomitant]
     Route: 048
     Dates: start: 20100225
  13. NEXIUM [Concomitant]
     Indication: GASTRITIS PROPHYLAXIS
     Dosage: 40 MILLIGRAM
     Route: 048
     Dates: start: 20100329
  14. LENALIDOMIDE [Suspect]
     Indication: MULTIPLE MYELOMA
     Route: 048
     Dates: start: 20100329
  15. DEXAMETHASONE [Suspect]
     Route: 065
     Dates: start: 20110527
  16. ATARAX [Concomitant]
     Indication: PROPHYLAXIS
     Route: 048
     Dates: start: 20100816
  17. MORPHINE SULFATE [Concomitant]
     Indication: BONE PAIN
     Route: 048
     Dates: start: 20110429
  18. SYMBICORT [Concomitant]
     Indication: ASTHMA
     Dosage: 2 DOSAGE FORMS
     Route: 055
     Dates: start: 20100313
  19. IMOVANE [Concomitant]
     Indication: PROPHYLAXIS
     Dosage: 7.5 MILLIGRAM
     Route: 048
     Dates: start: 20100329
  20. MORPHINE SULFATE [Concomitant]
     Indication: BONE PAIN
     Route: 048
     Dates: start: 20110429
  21. SINGULAIR [Concomitant]
     Indication: ASTHMA
     Dosage: 10 MILLIGRAM
     Route: 048
     Dates: start: 20030201

REACTIONS (1)
  - LUNG DISORDER [None]
